FAERS Safety Report 4502271-X (Version None)
Quarter: 2004Q4

REPORT INFORMATION
  Report Type: 
  Country: None (occurrence: None)
  Receive Date: 20041109
  Receipt Date: 20041022
  Transmission Date: 20050328
  Serious: Yes (Life-Threatening, Hospitalization)
  Sender: FDA-Public Use
  Company Number: S01-FRA-00062-01

PATIENT
  Age: 50 Year
  Sex: Female

DRUGS (6)
  1. CITALOPRAM [Suspect]
     Indication: DEPRESSION
     Dosage: 20 MG QD PO
     Route: 048
     Dates: start: 19990401, end: 19991028
  2. CITALOPRAM [Suspect]
     Indication: DEPRESSION
     Dosage: 20 MG QD PO
     Route: 048
  3. MAGNESIUM [Suspect]
     Indication: LATENT TETANY
     Dates: end: 19991001
  4. MAGNESIUM [Suspect]
     Indication: LATENT TETANY
     Dates: start: 19991001, end: 19990101
  5. PRAXINOR [Concomitant]
  6. DIPHENHYDRAMINE [Concomitant]

REACTIONS (9)
  - ELECTROCARDIOGRAM QT CORRECTED INTERVAL PROLONGED [None]
  - ELECTROCARDIOGRAM QT PROLONGED [None]
  - EXTRASYSTOLES [None]
  - HYPOKALAEMIA [None]
  - LOSS OF CONSCIOUSNESS [None]
  - MALAISE [None]
  - SYNCOPE [None]
  - TORSADE DE POINTES [None]
  - VENTRICULAR EXTRASYSTOLES [None]
